FAERS Safety Report 24206723 (Version 1)
Quarter: 2024Q3

REPORT INFORMATION
  Report Type: Spontaneous
  Country: IL (occurrence: IL)
  Receive Date: 20240813
  Receipt Date: 20240813
  Transmission Date: 20241017
  Serious: Yes (Death, Hospitalization, Other)
  Sender: JAZZ
  Company Number: IL-JAZZ PHARMACEUTICALS-2024-IL-008122

PATIENT
  Age: 25 Year
  Sex: Male

DRUGS (1)
  1. VYXEOS [Suspect]
     Active Substance: CYTARABINE\DAUNORUBICIN
     Indication: Acute myeloid leukaemia
     Dosage: UNK

REACTIONS (4)
  - Sepsis [Fatal]
  - Neutrophil count decreased [Unknown]
  - Bacteraemia [Unknown]
  - Abdominal pain [Unknown]
